FAERS Safety Report 14006133 (Version 1)
Quarter: 2017Q3

REPORT INFORMATION
  Report Type: Report from Study
  Country: None (occurrence: ZA)
  Receive Date: 20170924
  Receipt Date: 20170924
  Transmission Date: 20171128
  Serious: Yes (Hospitalization)
  Sender: FDA-Public Use
  Company Number: ZA-BIOGEN-2017BI00363618

PATIENT
  Age: 24 Year
  Sex: Male
  Weight: 70.8 kg

DRUGS (2)
  1. RFIXFC [Suspect]
     Active Substance: EFTRENONACOG ALFA
     Route: 042
     Dates: start: 20170216, end: 20170216
  2. RFIXFC [Suspect]
     Active Substance: EFTRENONACOG ALFA
     Indication: FACTOR IX DEFICIENCY
     Route: 042
     Dates: start: 20110627

REACTIONS (1)
  - Tonsillar haemorrhage [Recovered/Resolved]

NARRATIVE: CASE EVENT DATE: 20170221
